FAERS Safety Report 24753796 (Version 2)
Quarter: 2025Q1

REPORT INFORMATION
  Report Type: Spontaneous
  Country: US (occurrence: US)
  Receive Date: 20241219
  Receipt Date: 20250211
  Transmission Date: 20250408
  Serious: Yes (Other)
  Sender: ALEXION PHARMACEUTICALS
  Company Number: US-AstraZeneca-CH-00769097A

PATIENT

DRUGS (1)
  1. FARXIGA [Suspect]
     Active Substance: DAPAGLIFLOZIN PROPANEDIOL

REACTIONS (10)
  - Renal failure [Unknown]
  - Blood pressure increased [Unknown]
  - Hypertension [Unknown]
  - Drug ineffective [Unknown]
  - Urine analysis abnormal [Unknown]
  - Urticaria [Unknown]
  - Respiratory rate increased [Unknown]
  - Heart rate increased [Unknown]
  - Urinary tract infection [Unknown]
  - Feeling hot [Unknown]
